FAERS Safety Report 25404919 (Version 1)
Quarter: 2025Q2

REPORT INFORMATION
  Report Type: Spontaneous
  Country: ES (occurrence: ES)
  Receive Date: 20250606
  Receipt Date: 20250606
  Transmission Date: 20250716
  Serious: Yes (Life-Threatening, Hospitalization)
  Sender: TEVA
  Company Number: None

PATIENT
  Age: 75 Year
  Sex: Female

DRUGS (12)
  1. LEVOFLOXACIN [Suspect]
     Active Substance: LEVOFLOXACIN
     Indication: Antibiotic prophylaxis
     Route: 048
     Dates: start: 20250122, end: 20250429
  2. SULFAMETHOXAZOLE\TRIMETHOPRIM [Suspect]
     Active Substance: SULFAMETHOXAZOLE\TRIMETHOPRIM
     Indication: Antibiotic prophylaxis
     Dosage: 1 TABLET M-W-F, 160 MG/800 MG, 50 TABLETS
     Route: 048
     Dates: start: 20250122, end: 20250429
  3. ESCITALOPRAM OXALATE [Concomitant]
     Active Substance: ESCITALOPRAM OXALATE
     Indication: Product used for unknown indication
     Dosage: FILM-COATED TABLETS EFG 28 TABLETS
     Route: 048
     Dates: start: 20240226, end: 20250429
  4. ASPIRIN [Concomitant]
     Active Substance: ASPIRIN
     Indication: Product used for unknown indication
     Route: 048
     Dates: start: 20250122, end: 20250429
  5. CANDESARTAN CINFA [Concomitant]
     Indication: Hypertension
     Dosage: EFG TABLETS, 100 TABLETS
     Route: 048
     Dates: start: 20230120, end: 20250429
  6. ACYCLOVIR [Suspect]
     Active Substance: ACYCLOVIR
     Indication: Antiviral prophylaxis
     Dosage: 35 TABLETS
     Route: 048
     Dates: start: 20250122, end: 20250429
  7. LENALIDOMIDE [Suspect]
     Active Substance: LENALIDOMIDE
     Indication: Plasma cell myeloma
     Dosage: 15 MG/24H, IN 21-DAY CYCLES, LAST START 04/16, LENALIDOMIDE (8089A)
     Route: 048
     Dates: start: 20250122, end: 20250429
  8. DARZALEX [Suspect]
     Active Substance: DARATUMUMAB
     Indication: Plasma cell myeloma
     Dosage: 1 VIAL OF 15 ML
     Route: 058
     Dates: start: 20250122, end: 20250416
  9. ZOLEDRONIC ACID [Concomitant]
     Active Substance: ZOLEDRONIC ACID
     Indication: Plasma cell myeloma
     Dosage: INJECTION INFUSION 100 ML
     Route: 042
     Dates: start: 20250319
  10. FILGRASTIM [Concomitant]
     Active Substance: FILGRASTIM
     Indication: Neutropenia
     Route: 058
     Dates: start: 20250212, end: 20250304
  11. DEXAMETHASONE [Concomitant]
     Active Substance: DEXAMETHASONE
     Indication: Plasma cell myeloma
     Dosage: 40MG, WEDNESDAY AND THURSDAY
     Route: 048
     Dates: start: 20250122
  12. ARANESP [Concomitant]
     Active Substance: DARBEPOETIN ALFA
     Indication: Anaemia
     Dosage: WEEKLY
     Route: 058
     Dates: start: 20250122, end: 20250429

REACTIONS (3)
  - Hepatic cytolysis [Recovering/Resolving]
  - Hypocoagulable state [Recovered/Resolved]
  - Hyperbilirubinaemia [Recovering/Resolving]

NARRATIVE: CASE EVENT DATE: 20250428
